FAERS Safety Report 7363766-7 (Version None)
Quarter: 2011Q1

REPORT INFORMATION
  Report Type: 
  Country: None (occurrence: None)
  Receive Date: 20110321
  Receipt Date: 20110315
  Transmission Date: 20110831
  Serious: Yes (Other)
  Sender: FDA-Public Use
  Company Number: GB-US-EMD SERONO, INC.-7048221

PATIENT
  Sex: Female

DRUGS (3)
  1. REBIF [Suspect]
     Route: 058
     Dates: start: 20070901
  2. REBIF [Suspect]
     Indication: PRODUCT USED FOR UNKNOWN INDICATION
     Route: 058
     Dates: start: 20041201, end: 20070701
  3. REBIF [Suspect]
     Route: 058
     Dates: start: 20070701, end: 20070901

REACTIONS (3)
  - SEPSIS [None]
  - DEVICE RELATED INFECTION [None]
  - LIVER FUNCTION TEST ABNORMAL [None]
